FAERS Safety Report 7413528-7 (Version None)
Quarter: 2011Q2

REPORT INFORMATION
  Report Type: 
  Country: None (occurrence: None)
  Receive Date: 20110413
  Receipt Date: 20110412
  Transmission Date: 20111010
  Serious: Yes (Hospitalization)
  Sender: FDA-Public Use
  Company Number: US-ABBOTT-11P-163-0718268-00

PATIENT
  Sex: Female

DRUGS (2)
  1. RITONAVIR [Suspect]
     Indication: HIV INFECTION
     Route: 048
  2. APTIVUS [Concomitant]
     Indication: HIV INFECTION
     Route: 048

REACTIONS (2)
  - SUICIDE ATTEMPT [None]
  - DEPRESSION [None]
